FAERS Safety Report 10358274 (Version 2)
Quarter: 2014Q4

REPORT INFORMATION
  Report Type: Other
  Country: IT (occurrence: IT)
  Receive Date: 20140801
  Receipt Date: 20141120
  Transmission Date: 20150528
  Serious: Yes (Hospitalization)
  Sender: FDA-Public Use
  Company Number: IT-MYLAN-2014S1017832

PATIENT

DRUGS (4)
  1. CARVEDILOL. [Suspect]
     Active Substance: CARVEDILOL
     Indication: PRODUCT USED FOR UNKNOWN INDICATION
     Dosage: 12.5 MG,QD
     Route: 048
     Dates: start: 20140101, end: 20140505
  2. AMIODARONE [Suspect]
     Active Substance: AMIODARONE
     Indication: ATRIAL FIBRILLATION
     Dosage: 200 MG,QD
     Route: 048
     Dates: start: 20140101, end: 20140505
  3. RAMIPRIL. [Concomitant]
     Active Substance: RAMIPRIL
     Indication: PRODUCT USED FOR UNKNOWN INDICATION
     Dosage: UNK
  4. SINTROM [Concomitant]
     Active Substance: ACENOCOUMAROL
     Indication: PRODUCT USED FOR UNKNOWN INDICATION
     Dosage: UNK

REACTIONS (2)
  - Atrioventricular block second degree [Recovered/Resolved]
  - Bundle branch block left [Recovered/Resolved]

NARRATIVE: CASE EVENT DATE: 20140505
